FAERS Safety Report 4690892-3 (Version None)
Quarter: 2005Q2

REPORT INFORMATION
  Report Type: 
  Country: None (occurrence: None)
  Receive Date: 20050615
  Receipt Date: 20050420
  Transmission Date: 20051028
  Serious: Yes (Other)
  Sender: FDA-Public Use
  Company Number: PHBS2005ES05647

PATIENT
  Age: 65 Year
  Sex: Male

DRUGS (6)
  1. AREDIA [Suspect]
     Indication: MULTIPLE MYELOMA
     Dosage: 90 MG, QMO
     Route: 042
     Dates: start: 19990601, end: 20030101
  2. ZOMETA [Suspect]
     Indication: MULTIPLE MYELOMA
     Dosage: 4 MG EVERY 6 WEEKS
     Route: 042
     Dates: start: 20030201, end: 20041001
  3. CHEMOTHERAPEUTICS,OTHER [Concomitant]
     Dosage: 3 CYCLES
     Route: 065
     Dates: start: 19990101
  4. BONE MARROW TRANSPLANT [Concomitant]
     Route: 065
     Dates: start: 19991101
  5. INTRON A [Concomitant]
     Route: 065
  6. PLAVIX [Concomitant]
     Route: 065

REACTIONS (8)
  - ASEPTIC NECROSIS BONE [None]
  - BONE INFECTION [None]
  - BONE LESION [None]
  - DRUG INTERACTION [None]
  - OSTEOMYELITIS CHRONIC [None]
  - OSTEONECROSIS [None]
  - TOOTH EXTRACTION [None]
  - WOUND DEBRIDEMENT [None]
